FAERS Safety Report 20188421 (Version 1)
Quarter: 2021Q4

REPORT INFORMATION
  Report Type: Spontaneous
  Country: US (occurrence: US)
  Receive Date: 20211215
  Receipt Date: 20211215
  Transmission Date: 20220304
  Serious: No
  Sender: FDA-Public Use
  Company Number: US-009507513-2112USA003493

PATIENT
  Weight: 3 kg

DRUGS (1)
  1. BRIDION [Suspect]
     Active Substance: SUGAMMADEX
     Indication: Neuromuscular blockade reversal
     Dosage: 16 MILLIGRAM/KILOGRAM, ONCE
     Route: 042

REACTIONS (2)
  - Therapeutic product effect incomplete [Recovered/Resolved]
  - Product administered to patient of inappropriate age [Unknown]
